FAERS Safety Report 25136215 (Version 1)
Quarter: 2025Q1

REPORT INFORMATION
  Report Type: Spontaneous
  Country: CA (occurrence: CA)
  Receive Date: 20250328
  Receipt Date: 20250328
  Transmission Date: 20250409
  Serious: Yes (Disabling)
  Sender: SANDOZ
  Company Number: CA-SANDOZ-SDZ2025CA018997

PATIENT
  Age: 89 Year
  Sex: Female
  Weight: 52.154 kg

DRUGS (1)
  1. JUBBONTI [Suspect]
     Active Substance: DENOSUMAB-BBDZ
     Indication: Osteoporosis
     Route: 065
     Dates: start: 20250203, end: 20250203

REACTIONS (2)
  - Limb discomfort [Recovered/Resolved]
  - Fall [Recovered/Resolved]

NARRATIVE: CASE EVENT DATE: 20250204
